FAERS Safety Report 25875409 (Version 1)
Quarter: 2025Q4

REPORT INFORMATION
  Report Type: Report from Study
  Country: US (occurrence: US)
  Receive Date: 20251003
  Receipt Date: 20251003
  Transmission Date: 20260117
  Serious: Yes (Other)
  Sender: JOHNSON AND JOHNSON
  Company Number: US-JNJFOC-20250803811

PATIENT
  Age: 55 Year
  Sex: Male

DRUGS (2)
  1. SPRAVATO [Suspect]
     Active Substance: ESKETAMINE
     Indication: Depression
     Dosage: ^56 MG, 6 TOTAL DOSES^
     Route: 045
     Dates: start: 20250804, end: 20250825
  2. SPRAVATO [Suspect]
     Active Substance: ESKETAMINE
     Dosage: ^84 MG, 4 TOTAL DOSES^
     Route: 045
     Dates: start: 20250904, end: 20250924

REACTIONS (13)
  - Blood pressure increased [Unknown]
  - Hallucination, visual [Unknown]
  - Drug ineffective [Unknown]
  - Euphoric mood [Recovered/Resolved]
  - Taste disorder [Recovered/Resolved]
  - Flushing [Unknown]
  - Abdominal pain upper [Unknown]
  - Erythema [Unknown]
  - Somnolence [Unknown]
  - Dizziness [Recovered/Resolved]
  - Gait disturbance [Recovered/Resolved]
  - Feeling abnormal [Unknown]
  - Depression [Unknown]

NARRATIVE: CASE EVENT DATE: 20250101
